FAERS Safety Report 13526876 (Version 2)
Quarter: 2017Q2

REPORT INFORMATION
  Report Type: Report from Study
  Country: US (occurrence: US)
  Receive Date: 20170509
  Receipt Date: 20170516
  Transmission Date: 20170830
  Serious: Yes (Death)
  Sender: FDA-Public Use
  Company Number: PHHY2017US065133

PATIENT
  Sex: Male
  Weight: 64 kg

DRUGS (1)
  1. LAMPRENE [Suspect]
     Active Substance: CLOFAZIMINE
     Indication: MYCOBACTERIAL INFECTION
     Dosage: 2 DF, QD
     Route: 048
     Dates: start: 20170411, end: 20170428

REACTIONS (1)
  - Mycobacterial infection [Fatal]
